FAERS Safety Report 5924766-4 (Version None)
Quarter: 2008Q4

REPORT INFORMATION
  Report Type: 
  Country: None (occurrence: None)
  Receive Date: 20081017
  Receipt Date: 20081006
  Transmission Date: 20090506
  Serious: Yes (Hospitalization)
  Sender: FDA-Public Use
  Company Number: B0541702A

PATIENT
  Age: 47 Year
  Sex: Female

DRUGS (1)
  1. SALBUTAMOL SULPHATE INHALER (GENERIC) (ALBUTEROL SULFATE) [Suspect]
     Indication: ASTHMA
     Dosage: AS REQUIRED / INHALED
     Route: 055

REACTIONS (4)
  - CORONARY ARTERY DISEASE [None]
  - HEART RATE INCREASED [None]
  - MYOCARDIAL INFARCTION [None]
  - TREATMENT NONCOMPLIANCE [None]
